FAERS Safety Report 21755239 (Version 1)
Quarter: 2022Q4

REPORT INFORMATION
  Report Type: Spontaneous
  Country: CN (occurrence: CN)
  Receive Date: 20221220
  Receipt Date: 20221220
  Transmission Date: 20230113
  Serious: Yes (Hospitalization, Other)
  Sender: FDA-Public Use
  Company Number: CN-PFIZER INC-PV202200125524

PATIENT
  Age: 71 Year
  Sex: Female
  Weight: 38 kg

DRUGS (2)
  1. CYTARABINE [Suspect]
     Active Substance: CYTARABINE
     Indication: Acute monocytic leukaemia
     Dosage: 15 MG, 2X/DAY
     Route: 058
     Dates: start: 20220823, end: 20220828
  2. OMACETAXINE MEPESUCCINATE [Suspect]
     Active Substance: OMACETAXINE MEPESUCCINATE
     Indication: Acute monocytic leukaemia
     Dosage: 2 MG, 1X/DAY
     Route: 030
     Dates: start: 20220823, end: 20220823

REACTIONS (3)
  - Platelet count decreased [Not Recovered/Not Resolved]
  - Infection [Unknown]
  - General physical health deterioration [Unknown]

NARRATIVE: CASE EVENT DATE: 20220824
